FAERS Safety Report 14940289 (Version 2)
Quarter: 2020Q2

REPORT INFORMATION
  Report Type: Report from Study
  Country: GR (occurrence: GR)
  Receive Date: 20180525
  Receipt Date: 20200528
  Transmission Date: 20200713
  Serious: Yes (Hospitalization)
  Sender: FDA-Public Use
  Company Number: GR-SA-2015SA200580

PATIENT
  Age: 53 Year
  Sex: Male
  Weight: 80 kg

DRUGS (11)
  1. ALEMTUZUMAB [Suspect]
     Active Substance: ALEMTUZUMAB
     Dosage: 12 MG,QD
     Route: 041
     Dates: start: 20161116, end: 20161117
  2. TEGRETOL [Concomitant]
     Active Substance: CARBAMAZEPINE
     Dosage: 400 MG,QD
     Route: 048
     Dates: start: 20160510
  3. OMEPRAZOLE. [Concomitant]
     Active Substance: OMEPRAZOLE
     Indication: PROPHYLAXIS
     Dosage: 40 MG,QD
     Route: 042
     Dates: start: 20151112, end: 20151116
  4. METHYLPREDNISOLONE. [Concomitant]
     Active Substance: METHYLPREDNISOLONE
     Indication: PROPHYLAXIS
     Dosage: 1250 MG,QD
     Route: 042
     Dates: start: 20151112, end: 20151116
  5. ALEMTUZUMAB [Suspect]
     Active Substance: ALEMTUZUMAB
     Indication: RELAPSING MULTIPLE SCLEROSIS
     Dosage: 12 MG,QD
     Route: 041
     Dates: start: 20151112, end: 20151116
  6. TEGRETOL [Concomitant]
     Active Substance: CARBAMAZEPINE
     Indication: DRUG THERAPY
     Dosage: 1800 MG,QD
     Route: 048
     Dates: start: 2010, end: 20160509
  7. LYRICA [Concomitant]
     Active Substance: PREGABALIN
     Indication: DRUG THERAPY
     Dosage: 450 MG,QD
     Route: 048
     Dates: start: 2010, end: 20160404
  8. DIMETINDENE MALEATE [Concomitant]
     Active Substance: DIMETHINDENE MALEATE
     Indication: PROPHYLAXIS
     Dosage: 4 MG,QD
     Route: 042
     Dates: start: 20151112, end: 20151116
  9. ACICLOVIR [Concomitant]
     Active Substance: ACYCLOVIR
     Indication: PROPHYLAXIS
     Dosage: 800 MG,QD
     Route: 048
     Dates: start: 20151110, end: 20151210
  10. ALEMTUZUMAB [Suspect]
     Active Substance: ALEMTUZUMAB
     Dosage: 12 MG,QD
     Route: 041
     Dates: start: 20161119, end: 20161120
  11. LYRICA [Concomitant]
     Active Substance: PREGABALIN
     Dosage: 300 MG,QD
     Route: 048
     Dates: start: 20160405

REACTIONS (3)
  - Blood creatine phosphokinase increased [Recovering/Resolving]
  - Anaemia [Recovering/Resolving]
  - Rash macular [Recovered/Resolved]

NARRATIVE: CASE EVENT DATE: 20151116
